FAERS Safety Report 11401738 (Version 4)
Quarter: 2018Q4

REPORT INFORMATION
  Report Type: Report from Study
  Country: US (occurrence: US)
  Receive Date: 20150821
  Receipt Date: 20181226
  Transmission Date: 20190204
  Serious: No
  Sender: FDA-Public Use
  Company Number: PHHY2015US042811

PATIENT
  Age: 55 Year
  Sex: Female

DRUGS (1)
  1. GILENYA [Suspect]
     Active Substance: FINGOLIMOD HYDROCHLORIDE
     Indication: MULTIPLE SCLEROSIS
     Dosage: UNK, QD
     Route: 048

REACTIONS (3)
  - Insomnia [Recovered/Resolved]
  - Viral infection [Not Recovered/Not Resolved]
  - Fatigue [Recovered/Resolved]

NARRATIVE: CASE EVENT DATE: 20141105
